FAERS Safety Report 8522319-5 (Version None)
Quarter: 2012Q3

REPORT INFORMATION
  Report Type: 
  Country: None (occurrence: None)
  Receive Date: 20120719
  Receipt Date: 20120711
  Transmission Date: 20120928
  Serious: Yes (Other)
  Sender: FDA-Public Use
  Company Number: US-ELI_LILLY_AND_COMPANY-US201206008205

PATIENT
  Sex: Female

DRUGS (3)
  1. FORTEO [Suspect]
     Dosage: 20 UG, QD
  2. FORTEO [Suspect]
     Indication: OSTEOPOROSIS
     Dosage: 20 UG, QD
     Dates: start: 20120613
  3. COUMADIN [Concomitant]
     Indication: THROMBOSIS

REACTIONS (18)
  - PAIN [None]
  - THORACIC VERTEBRAL FRACTURE [None]
  - HEADACHE [None]
  - ARTHRITIS [None]
  - LIMB DISCOMFORT [None]
  - PAIN IN EXTREMITY [None]
  - MUSCULOSKELETAL STIFFNESS [None]
  - OEDEMA PERIPHERAL [None]
  - INSOMNIA [None]
  - ABDOMINAL DISCOMFORT [None]
  - FALL [None]
  - HEAD INJURY [None]
  - BLOOD PRESSURE INCREASED [None]
  - DIZZINESS [None]
  - LOSS OF CONSCIOUSNESS [None]
  - VOMITING [None]
  - PARAESTHESIA [None]
  - CONTUSION [None]
